FAERS Safety Report 12898722 (Version 1)
Quarter: 2016Q4

REPORT INFORMATION
  Report Type: Spontaneous
  Country: US (occurrence: US)
  Receive Date: 20161101
  Receipt Date: 20161101
  Transmission Date: 20170207
  Serious: Yes (Hospitalization, Other)
  Sender: FDA-Public Use
  Company Number: US-GLENMARK PHARMACEUTICALS EUROPE LIMITED-2016GMK024804

PATIENT
  Age: 50 Year
  Sex: Female

DRUGS (3)
  1. GABAPENTIN. [Suspect]
     Active Substance: GABAPENTIN
     Dosage: 300 MG, UNK
     Route: 065
  2. GABAPENTIN. [Suspect]
     Active Substance: GABAPENTIN
     Dosage: 80 CAPSULES OF 300 MG
     Route: 048
  3. GABAPENTIN. [Suspect]
     Active Substance: GABAPENTIN
     Indication: PRODUCT USED FOR UNKNOWN INDICATION
     Dosage: 4800 MG, QD (OVERUSE)
     Route: 065

REACTIONS (6)
  - Dyskinesia [Unknown]
  - Intentional overdose [Unknown]
  - Drug abuse [Unknown]
  - Neurotoxicity [Unknown]
  - Posterior reversible encephalopathy syndrome [Recovered/Resolved]
  - Depressed level of consciousness [Unknown]
